FAERS Safety Report 19898391 (Version 1)
Quarter: 2021Q3

REPORT INFORMATION
  Report Type: Spontaneous
  Country: US (occurrence: US)
  Receive Date: 20210930
  Receipt Date: 20210930
  Transmission Date: 20211014
  Serious: No
  Sender: FDA-Public Use
  Company Number: US-PRINSTON PHARMACEUTICAL INC.-2020PRN00426

PATIENT

DRUGS (2)
  1. UNSPECIFIED PRODUCTS [Suspect]
     Active Substance: UNSPECIFIED INGREDIENT
  2. ESCITALOPRAM [Suspect]
     Active Substance: ESCITALOPRAM OXALATE

REACTIONS (1)
  - Allergic reaction to excipient [Unknown]
